FAERS Safety Report 7769698-4 (Version None)
Quarter: 2011Q3

REPORT INFORMATION
  Report Type: 
  Country: None (occurrence: None)
  Receive Date: 20110922
  Receipt Date: 20110113
  Transmission Date: 20111222
  Serious: Yes (Hospitalization)
  Sender: FDA-Public Use
  Company Number: US-ASTRAZENECA-2007UW06356

PATIENT
  Age: 577 Month
  Sex: Female
  Weight: 67.1 kg

DRUGS (9)
  1. SEROQUEL [Suspect]
     Route: 048
     Dates: start: 20040129
  2. SEROQUEL [Suspect]
     Route: 048
     Dates: start: 20040129
  3. SEROQUEL [Suspect]
     Indication: SLEEP DISORDER
     Route: 048
     Dates: start: 20030401
  4. SEROQUEL [Suspect]
     Indication: POST-TRAUMATIC STRESS DISORDER
     Route: 048
     Dates: start: 20030401
  5. ZOLOFT [Concomitant]
     Dosage: 150 AM
     Dates: start: 20040129
  6. SEROQUEL [Suspect]
     Indication: DEPRESSION
     Route: 048
     Dates: start: 20030401
  7. PROZAC [Concomitant]
     Dates: start: 20030101
  8. TYLENOL-500 [Concomitant]
     Indication: MIGRAINE
     Dates: start: 20050921
  9. SEROQUEL [Suspect]
     Route: 048
     Dates: start: 20040129

REACTIONS (3)
  - BLOOD CHOLESTEROL INCREASED [None]
  - TYPE 2 DIABETES MELLITUS [None]
  - HYPERTENSION [None]
